FAERS Safety Report 7276995 (Version 3)
Quarter: 2013Q3

REPORT INFORMATION
  Report Type: Report from Study
  Country: DE (occurrence: DE)
  Receive Date: 20100212
  Receipt Date: 20130801
  Transmission Date: 20140515
  Serious: Yes (Hospitalization)
  Sender: FDA-Public Use
  Company Number: DE-JNJFOC-20100202900

PATIENT
  Age: 28 Year
  Sex: Male
  Weight: 115 kg

DRUGS (7)
  1. REMICADE [Suspect]
     Indication: CROHN^S DISEASE
     Route: 042
     Dates: start: 20080227
  2. REMICADE [Suspect]
     Indication: CROHN^S DISEASE
     Route: 042
     Dates: start: 20080328
  3. REMICADE [Suspect]
     Indication: CROHN^S DISEASE
     Route: 042
     Dates: start: 20080425
  4. AZATHIOPRIN [Suspect]
     Indication: CROHN^S DISEASE
     Dosage: FREQUENCY: 2-0-2
     Dates: start: 200805
  5. BUDESONID [Suspect]
     Indication: CROHN^S DISEASE
     Dosage: FREQUENCY: 1-0-0
  6. OMEPRAZOLE [Suspect]
     Indication: PROPHYLAXIS
     Dosage: FREQUENCY: 1-0-0
  7. METOPROLOL [Suspect]
     Indication: HYPERTENSION
     Dosage: FREQUENCY: 1-0-0

REACTIONS (1)
  - Gastritis [Recovered/Resolved]
